FAERS Safety Report 5717492-8 (Version None)
Quarter: 2008Q2

REPORT INFORMATION
  Report Type: 
  Country: None (occurrence: None)
  Receive Date: 20080425
  Receipt Date: 20080417
  Transmission Date: 20081010
  Serious: Yes (Other)
  Sender: FDA-Public Use
  Company Number: US-BAYER-US-2007-007828

PATIENT
  Age: 43 Year
  Sex: Female
  Weight: 64 kg

DRUGS (3)
  1. BETASERON [Suspect]
     Indication: RELAPSING-REMITTING MULTIPLE SCLEROSIS
     Dosage: TOTAL DAILY DOSE: 8 MIU
     Route: 058
     Dates: start: 20070719, end: 20080213
  2. BETASERON [Suspect]
     Dosage: TOTAL DAILY DOSE: 8 MIU
     Route: 058
     Dates: start: 20010501, end: 20070702
  3. PIROXICAM [Concomitant]
     Route: 065
     Dates: end: 20070701

REACTIONS (17)
  - ALANINE AMINOTRANSFERASE INCREASED [None]
  - ASPARTATE AMINOTRANSFERASE INCREASED [None]
  - BLOOD POTASSIUM DECREASED [None]
  - COUGH [None]
  - DISUSE SYNDROME [None]
  - ERYTHEMA [None]
  - INJECTION SITE CELLULITIS [None]
  - INJECTION SITE HAEMORRHAGE [None]
  - INJECTION SITE MASS [None]
  - INJECTION SITE PAIN [None]
  - INJECTION SITE RASH [None]
  - JOINT RANGE OF MOTION DECREASED [None]
  - LOCALISED INFECTION [None]
  - OEDEMA PERIPHERAL [None]
  - PHARYNGOLARYNGEAL PAIN [None]
  - PHLEBITIS [None]
  - WHITE BLOOD CELL COUNT INCREASED [None]
